FAERS Safety Report 5093031-2 (Version None)
Quarter: 2006Q3

REPORT INFORMATION
  Report Type: 
  Country: None (occurrence: None)
  Receive Date: 20060728
  Receipt Date: 20060512
  Transmission Date: 20061208
  Serious: Yes (Hospitalization)
  Sender: FDA-Public Use
  Company Number: 252073

PATIENT
  Age: 58 Year
  Sex: Female
  Weight: 44 kg

DRUGS (1)
  1. LEVEMIR FLEXPEN(INSULIN DETERMIR) SOLUTION FOR INJECTION,.0024MOL/L [Suspect]
     Indication: DIABETES MELLITUS
     Dosage: 5 LU, BID, SUBCUTANEOUS
     Route: 058
     Dates: start: 20060306, end: 20060330

REACTIONS (1)
  - HYPERSENSITIVITY [None]
